FAERS Safety Report 6897507-4 (Version None)
Quarter: 2010Q3

REPORT INFORMATION
  Report Type: 
  Country: None (occurrence: None)
  Receive Date: 20100802
  Receipt Date: 20070620
  Transmission Date: 20110219
  Serious: No
  Sender: FDA-Public Use
  Company Number: US-PFIZER INC-2007040164

PATIENT
  Sex: Male
  Weight: 56.8 kg

DRUGS (2)
  1. PREGABALIN [Suspect]
     Indication: BACK DISORDER
     Route: 048
     Dates: start: 20070510, end: 20070512
  2. ATENOLOL [Concomitant]

REACTIONS (2)
  - ADVERSE DRUG REACTION [None]
  - VOMITING [None]
